FAERS Safety Report 6666957-3 (Version None)
Quarter: 2010Q2

REPORT INFORMATION
  Report Type: 
  Country: None (occurrence: None)
  Receive Date: 20100402
  Receipt Date: 20100402
  Transmission Date: 20101027
  Serious: No
  Sender: FDA-Public Use
  Company Number: None

PATIENT
  Sex: Male
  Weight: 76.4 kg

DRUGS (3)
  1. CARBOPLATIN [Suspect]
     Dosage: 1858 MG
  2. ERBITUX [Suspect]
     Dosage: 3979 MG
  3. TAXOL [Suspect]
     Dosage: 564 MG

REACTIONS (2)
  - LEUKOPENIA [None]
  - NEUTROPENIA [None]
